FAERS Safety Report 4397928-8 (Version None)
Quarter: 2004Q3

REPORT INFORMATION
  Report Type: 
  Country: None (occurrence: None)
  Receive Date: 20040713
  Receipt Date: 20040628
  Transmission Date: 20050211
  Serious: Yes (Hospitalization)
  Sender: FDA-Public Use
  Company Number: 175329

PATIENT
  Age: 65 Year
  Sex: Male
  Weight: 104.3273 kg

DRUGS (2)
  1. AVONEX [Suspect]
     Indication: MULTIPLE SCLEROSIS
     Dosage: 30 MCG QW IM
     Route: 030
  2. AZATHIOPRINE [Concomitant]

REACTIONS (6)
  - ARTHRALGIA [None]
  - ASTHENIA [None]
  - JOINT SWELLING [None]
  - JOINT WARMTH [None]
  - MUSCULAR WEAKNESS [None]
  - PAIN [None]
